FAERS Safety Report 6448312-4 (Version None)
Quarter: 2009Q4

REPORT INFORMATION
  Report Type: 
  Country: None (occurrence: None)
  Receive Date: 20091120
  Receipt Date: 20091116
  Transmission Date: 20100525
  Serious: Yes (Life-Threatening, Hospitalization, Disabling)
  Sender: FDA-Public Use
  Company Number: PHHY2009GR50054

PATIENT
  Age: 50 Year
  Sex: Female

DRUGS (1)
  1. EXJADE [Suspect]
     Indication: THALASSAEMIA BETA
     Dosage: UNK
     Route: 048
     Dates: start: 20090321, end: 20090412

REACTIONS (4)
  - ACIDOSIS HYPERCHLORAEMIC [None]
  - HEPATITIS [None]
  - LEUKOCYTOSIS [None]
  - PYREXIA [None]
